FAERS Safety Report 5174244-8 (Version None)
Quarter: 2006Q4

REPORT INFORMATION
  Report Type: 
  Country: None (occurrence: None)
  Receive Date: 20061214
  Receipt Date: 20061130
  Transmission Date: 20070319
  Serious: Yes (Life-Threatening, Hospitalization)
  Sender: FDA-Public Use
  Company Number: DE-JNJFOC-20061106448

PATIENT
  Age: 12 Year
  Sex: Male

DRUGS (2)
  1. CONCERTA [Suspect]
     Indication: ATTENTION DEFICIT/HYPERACTIVITY DISORDER
     Route: 048
     Dates: start: 20031001, end: 20060928
  2. METHYLPHENIDATE HCL [Concomitant]
     Indication: ATTENTION DEFICIT/HYPERACTIVITY DISORDER
     Dosage: 10-5-0
     Route: 048
     Dates: start: 20060101, end: 20060928

REACTIONS (3)
  - ACUTE LYMPHOCYTIC LEUKAEMIA [None]
  - BRONCHOPNEUMONIA [None]
  - THERAPY NON-RESPONDER [None]
